FAERS Safety Report 11247860 (Version 1)
Quarter: 2015Q3

REPORT INFORMATION
  Report Type: Spontaneous
  Country: US (occurrence: None)
  Receive Date: 20150707
  Receipt Date: 20150707
  Transmission Date: 20151125
  Serious: No
  Sender: FDA-Public Use
  Company Number: None

PATIENT
  Age: 67 Year
  Sex: Male
  Weight: 88.91 kg

DRUGS (6)
  1. NORVASC [Concomitant]
     Active Substance: AMLODIPINE BESYLATE
  2. ATIVAN [Concomitant]
     Active Substance: LORAZEPAM
  3. CENTRUM FOR SENIORS [Concomitant]
  4. DAILY MULTIVITAMIN [Concomitant]
     Active Substance: VITAMINS
  5. JANUMET [Suspect]
     Active Substance: METFORMIN HYDROCHLORIDE\SITAGLIPTIN PHOSPHATE
     Indication: DIABETES MELLITUS
     Dosage: WITH FOOD,  BY MOUTH
     Dates: start: 20150301
  6. LISINOPRIL. [Concomitant]
     Active Substance: LISINOPRIL

REACTIONS (9)
  - Gallbladder pain [None]
  - Peripheral swelling [None]
  - Malaise [None]
  - Rhinorrhoea [None]
  - Renal haemorrhage [None]
  - Renal failure [None]
  - Headache [None]
  - Joint swelling [None]
  - Irritability [None]

NARRATIVE: CASE EVENT DATE: 20150301
